FAERS Safety Report 10021093 (Version 2)
Quarter: 2014Q1

REPORT INFORMATION
  Report Type: Spontaneous
  Country: US (occurrence: US)
  Receive Date: 20140319
  Receipt Date: 20140331
  Transmission Date: 20141002
  Serious: No
  Sender: FDA-Public Use
  Company Number: US-PFIZER INC-2014076951

PATIENT
  Sex: Female

DRUGS (4)
  1. FLAGYL [Suspect]
     Dosage: UNK
     Route: 048
     Dates: end: 20130326
  2. AMPICILLIN [Suspect]
     Dosage: UNK
     Route: 048
     Dates: end: 20120621
  3. AUGMENTIN [Suspect]
     Dosage: UNK
  4. ALLEGRA [Suspect]
     Dosage: UNK
     Route: 048
     Dates: end: 20100312

REACTIONS (1)
  - Drug hypersensitivity [Recovered/Resolved]
